FAERS Safety Report 17472753 (Version 1)
Quarter: 2020Q1

REPORT INFORMATION
  Report Type: Spontaneous
  Country: US (occurrence: US)
  Receive Date: 20200218
  Receipt Date: 20200218
  Transmission Date: 20200409
  Serious: Yes (Death)
  Sender: FDA-Public Use
  Company Number: None

PATIENT
  Age: 68 Year
  Sex: Male

DRUGS (10)
  1. PANTOPRAZOLE [Concomitant]
     Active Substance: PANTOPRAZOLE
  2. ACYCLOVIR. [Concomitant]
     Active Substance: ACYCLOVIR
  3. JANUVIA [Concomitant]
     Active Substance: SITAGLIPTIN PHOSPHATE
  4. MYCOPHENOLATE 180MG [Suspect]
     Active Substance: MYCOPHENOLIC ACID
     Indication: TRANSPLANT
     Route: 048
     Dates: start: 20190114
  5. METOPROLOL. [Concomitant]
     Active Substance: METOPROLOL
  6. AZITHROMYCIN ANHYDROUS. [Concomitant]
     Active Substance: AZITHROMYCIN ANHYDROUS
  7. PRAVASTATIN. [Concomitant]
     Active Substance: PRAVASTATIN
  8. TACROLIMUS 0.5MG [Suspect]
     Active Substance: TACROLIMUS
     Indication: TRANSPLANT
     Route: 048
     Dates: start: 20190114
  9. CLONAZEPAM. [Concomitant]
     Active Substance: CLONAZEPAM
  10. ELIQUIS [Concomitant]
     Active Substance: APIXABAN

REACTIONS (1)
  - Death [None]

NARRATIVE: CASE EVENT DATE: 20200217
